FAERS Safety Report 6639454-9 (Version None)
Quarter: 2010Q1

REPORT INFORMATION
  Report Type: 
  Country: None (occurrence: None)
  Receive Date: 20100318
  Receipt Date: 20100308
  Transmission Date: 20100710
  Serious: Yes (Other)
  Sender: FDA-Public Use
  Company Number: US-RB-004688-10

PATIENT
  Age: 81 Year
  Sex: Male

DRUGS (1)
  1. MUCINEX [Suspect]
     Dosage: HE TAKES ONE PILL A DAY IN THE EVENING AND HAS FOR ALMOST A MONTH.
     Route: 048
     Dates: start: 20100201

REACTIONS (2)
  - DIASTOLIC DYSFUNCTION [None]
  - RENAL FAILURE [None]
